FAERS Safety Report 6381032-3 (Version None)
Quarter: 2009Q3

REPORT INFORMATION
  Report Type: 
  Country: None (occurrence: None)
  Receive Date: 20090925
  Receipt Date: 20090925
  Transmission Date: 20100115
  Serious: Yes (Other)
  Sender: FDA-Public Use
  Company Number: None

PATIENT
  Sex: Female
  Weight: 72.5755 kg

DRUGS (2)
  1. BYSTOLIC [Suspect]
     Indication: HYPERTENSION
     Dosage: 1 TAB. PER DAY
     Dates: start: 20090520, end: 20090527
  2. BYSTOLIC [Suspect]
     Indication: HYPERTENSION
     Dosage: 1 TAB. PER DAY
     Dates: start: 20090604, end: 20090817

REACTIONS (6)
  - ABDOMINAL PAIN UPPER [None]
  - EAR CONGESTION [None]
  - GASTROINTESTINAL PAIN [None]
  - OROPHARYNGEAL PAIN [None]
  - PRURITUS [None]
  - URTICARIA [None]
